FAERS Safety Report 4842646-2 (Version None)
Quarter: 2005Q4

REPORT INFORMATION
  Report Type: 
  Country: None (occurrence: None)
  Receive Date: 20051201
  Receipt Date: 20051125
  Transmission Date: 20060501
  Serious: Yes (Life-Threatening)
  Sender: FDA-Public Use
  Company Number: DE-BRACCO-BRO-009615

PATIENT
  Sex: Female

DRUGS (1)
  1. MULTIHANCE [Suspect]
     Route: 042
     Dates: start: 20051118, end: 20051118

REACTIONS (6)
  - DYSPNOEA [None]
  - ERYTHEMA [None]
  - LACRIMATION INCREASED [None]
  - NASAL CONGESTION [None]
  - NAUSEA [None]
  - SWELLING [None]
